FAERS Safety Report 5643200-5 (Version None)
Quarter: 2008Q1

REPORT INFORMATION
  Report Type: 
  Country: None (occurrence: None)
  Receive Date: 20080131
  Receipt Date: 20071010
  Transmission Date: 20080703
  Serious: No
  Sender: FDA-Public Use
  Company Number: PHEH2007US13556

PATIENT
  Age: 50 Year
  Sex: Female
  Weight: 115.6 kg

DRUGS (3)
  1. TEKTURNA [Suspect]
     Indication: HYPERTENSION
     Dosage: 150, QD, ORAL
     Route: 048
     Dates: start: 20070625, end: 20070707
  2. MICARDIS HCT [Concomitant]
  3. TOPROL-XL [Concomitant]

REACTIONS (2)
  - HEADACHE [None]
  - RASH [None]
